FAERS Safety Report 5075627-7 (Version None)
Quarter: 2006Q3

REPORT INFORMATION
  Report Type: 
  Country: None (occurrence: None)
  Receive Date: 20060807
  Receipt Date: 20060727
  Transmission Date: 20061208
  Serious: Yes (Other)
  Sender: FDA-Public Use
  Company Number: S06-USA-02981-01

PATIENT
  Age: 27 Year
  Sex: Male
  Weight: 72.5755 kg

DRUGS (4)
  1. LEXAPRO [Suspect]
     Indication: ELECTROLYTE IMBALANCE
     Dosage: 20 MG QD PO
     Route: 048
     Dates: start: 20060713
  2. LEXAPRO [Suspect]
     Indication: ELECTROLYTE IMBALANCE
     Dosage: 10 MG QD PO
     Route: 048
     Dates: start: 20060501, end: 20060712
  3. NARPROXEN [Concomitant]
  4. GOODY'S POWDER (ACETAMINOPHEN/ASPIRIN/CAFFEINE) [Concomitant]

REACTIONS (1)
  - BLOOD TRIGLYCERIDES INCREASED [None]
